FAERS Safety Report 15534879 (Version 2)
Quarter: 2018Q4

REPORT INFORMATION
  Report Type: Spontaneous
  Country: US (occurrence: US)
  Receive Date: 20181022
  Receipt Date: 20181024
  Transmission Date: 20190205
  Serious: No
  Sender: FDA-Public Use
  Company Number: US-TEVA-2018-US-965401

PATIENT
  Age: 69 Year
  Sex: Female

DRUGS (4)
  1. CLONAZEPAM ACCORD [Concomitant]
     Active Substance: CLONAZEPAM
     Indication: BLOOD PRESSURE MEASUREMENT
     Dosage: 1 MILLIGRAM DAILY;
     Route: 065
  2. CLONAZEPAM TEVA [Suspect]
     Active Substance: CLONAZEPAM
     Indication: BLOOD PRESSURE MEASUREMENT
     Dosage: 5 MILLIGRAM DAILY;
     Route: 065
  3. CLONAZEPAM TEVA [Suspect]
     Active Substance: CLONAZEPAM
     Indication: NERVE INJURY
     Route: 065
  4. DILTIAZEM. [Concomitant]
     Active Substance: DILTIAZEM
     Indication: BLOOD PRESSURE MEASUREMENT
     Route: 065

REACTIONS (3)
  - Blood pressure abnormal [Unknown]
  - Product use in unapproved indication [Unknown]
  - Product substitution issue [Unknown]
